FAERS Safety Report 10191168 (Version 3)
Quarter: 2014Q3

REPORT INFORMATION
  Report Type: Spontaneous
  Country: DK (occurrence: DK)
  Receive Date: 20140523
  Receipt Date: 20140929
  Transmission Date: 20150326
  Serious: Yes (Death, Other)
  Sender: FDA-Public Use
  Company Number: DK-SA-2013SA111969

PATIENT
  Sex: Male

DRUGS (1)
  1. JEVTANA [Suspect]
     Active Substance: CABAZITAXEL
     Indication: PRODUCT USED FOR UNKNOWN INDICATION
     Dosage: 1-12 CYCLES PER PATIENT
     Route: 042

REACTIONS (7)
  - Febrile neutropenia [Unknown]
  - Neuropathy peripheral [Unknown]
  - Overdose [Unknown]
  - Diarrhoea [Unknown]
  - Fatigue [Unknown]
  - Death [Fatal]
  - Neutropenia [Unknown]

NARRATIVE: CASE EVENT DATE: 20111124
